FAERS Safety Report 6754033-0 (Version None)
Quarter: 2010Q2

REPORT INFORMATION
  Report Type: 
  Country: None (occurrence: None)
  Receive Date: 20100603
  Receipt Date: 20100531
  Transmission Date: 20101027
  Serious: Yes (Hospitalization)
  Sender: FDA-Public Use
  Company Number: D0067786A

PATIENT
  Age: 81 Year
  Sex: Female
  Weight: 106 kg

DRUGS (13)
  1. AUGMENTIN '125' [Suspect]
     Dosage: 2.2G PER DAY
     Route: 040
     Dates: start: 20100226, end: 20100228
  2. CLINDAMYCIN [Suspect]
     Dosage: 600MG THREE TIMES PER DAY
     Route: 048
     Dates: start: 20100226, end: 20100310
  3. AMOCLAV [Suspect]
     Dosage: 875MG TWICE PER DAY
     Route: 048
     Dates: start: 20100228, end: 20100319
  4. TORSEMIDE [Concomitant]
     Dosage: 10MG PER DAY
     Route: 048
  5. MOXONIDINE [Concomitant]
     Dosage: .4MG PER DAY
     Route: 048
  6. NEBIVOLOL HCL [Concomitant]
     Dosage: 2.5MG TWICE PER DAY
     Route: 048
  7. DIPYRONE TAB [Concomitant]
     Indication: PAIN
     Dosage: 500MG THREE TIMES PER DAY
     Route: 048
  8. CYMBALTA [Concomitant]
     Indication: DEPRESSION
     Dosage: 30MG TWICE PER DAY
     Route: 048
  9. DIOVAN [Concomitant]
     Dosage: 320MG PER DAY
     Route: 048
  10. AMLODIPINE [Concomitant]
     Dosage: 5MG TWICE PER DAY
     Route: 048
  11. EBRANTIL [Concomitant]
     Dosage: 30MG TWICE PER DAY
     Route: 048
  12. ASPIRIN [Concomitant]
     Dosage: 100MG PER DAY
     Route: 048
  13. INSULIN [Concomitant]
     Route: 058

REACTIONS (3)
  - ASTHENIA [None]
  - CLOSTRIDIUM DIFFICILE COLITIS [None]
  - DEHYDRATION [None]
